FAERS Safety Report 25254527 (Version 2)
Quarter: 2025Q2

REPORT INFORMATION
  Report Type: Report from Study
  Country: US (occurrence: US)
  Receive Date: 20250430
  Receipt Date: 20250616
  Transmission Date: 20250717
  Serious: Yes (Hospitalization, Other)
  Sender: ABBVIE
  Company Number: US-ABBVIE-6259603

PATIENT
  Sex: Female

DRUGS (1)
  1. HUMIRA [Suspect]
     Active Substance: ADALIMUMAB
     Indication: Rheumatoid arthritis
     Route: 058
     Dates: start: 2017

REACTIONS (4)
  - Pneumothorax [Unknown]
  - Illness [Recovering/Resolving]
  - Pain [Not Recovered/Not Resolved]
  - Aphthous ulcer [Unknown]
